FAERS Safety Report 4353650-5 (Version None)
Quarter: 2004Q2

REPORT INFORMATION
  Report Type: 
  Country: None (occurrence: None)
  Receive Date: 20040430
  Receipt Date: 20040325
  Transmission Date: 20050107
  Serious: Yes (Hospitalization)
  Sender: FDA-Public Use
  Company Number: US-SHR-03-019048

PATIENT
  Age: 58 Year
  Sex: Male
  Weight: 56.7 kg

DRUGS (3)
  1. BETASERON (INTERFERON BETA-1B) INJECTION 250 UG [Suspect]
     Indication: MULTIPLE SCLEROSIS
     Dosage: 8 MIU, EVERY 2D, SUBCUTANEOUS
     Route: 058
     Dates: start: 20020716
  2. ASPIRIN [Concomitant]
  3. TRILEPTAL [Concomitant]

REACTIONS (4)
  - INJECTION SITE ERYTHEMA [None]
  - INJECTION SITE PAIN [None]
  - INJECTION SITE SWELLING [None]
  - TENDONITIS [None]
